FAERS Safety Report 9643380 (Version 1)
Quarter: 2013Q4

REPORT INFORMATION
  Report Type: Spontaneous
  Country: IL (occurrence: IL)
  Receive Date: 20131024
  Receipt Date: 20131024
  Transmission Date: 20140711
  Serious: Yes (Hospitalization)
  Sender: FDA-Public Use
  Company Number: IL-SA-2013SA107281

PATIENT
  Sex: Male

DRUGS (2)
  1. MYOZYME [Suspect]
     Indication: GLYCOGEN STORAGE DISEASE TYPE II
     Route: 042
     Dates: start: 201304
  2. GLYCOPYRROLATE [Concomitant]

REACTIONS (2)
  - Social problem [Unknown]
  - Dyspnoea [Unknown]
